FAERS Safety Report 15807912 (Version 1)
Quarter: 2019Q1

REPORT INFORMATION
  Report Type: Spontaneous
  Country: GB (occurrence: GB)
  Receive Date: 20190110
  Receipt Date: 20190110
  Transmission Date: 20190417
  Serious: Yes (Other)
  Sender: FDA-Public Use
  Company Number: GB-OTSUKA-2019_000451

PATIENT
  Sex: Female

DRUGS (2)
  1. LAMOTRIGINE. [Concomitant]
     Active Substance: LAMOTRIGINE
     Indication: BIPOLAR DISORDER
     Dosage: 200 MG, UNK
     Route: 048
  2. ARIPIPRAZOLE. [Suspect]
     Active Substance: ARIPIPRAZOLE
     Indication: BIPOLAR DISORDER
     Dosage: 2.5 MG, UNK
     Route: 048
     Dates: start: 20181202, end: 20181203

REACTIONS (4)
  - Anger [Recovered/Resolved]
  - Visual impairment [Recovered/Resolved]
  - Underdose [Unknown]
  - Disinhibition [Recovered/Resolved]

NARRATIVE: CASE EVENT DATE: 20181202
